FAERS Safety Report 20359444 (Version 4)
Quarter: 2023Q4

REPORT INFORMATION
  Report Type: Spontaneous
  Country: US (occurrence: US)
  Receive Date: 20220121
  Receipt Date: 20231116
  Transmission Date: 20240109
  Serious: No
  Sender: FDA-Public Use
  Company Number: US-BEH-2022140874

PATIENT
  Age: 53 Year
  Sex: Female
  Weight: 120 kg

DRUGS (3)
  1. HIZENTRA [Suspect]
     Active Substance: HUMAN IMMUNOGLOBULIN G
     Indication: Hypogammaglobulinaemia
     Dosage: 10 GRAM, QW
     Route: 058
     Dates: start: 20211226
  2. HIZENTRA [Suspect]
     Active Substance: HUMAN IMMUNOGLOBULIN G
     Dosage: 10 GRAM, QW
     Route: 065
     Dates: start: 20211229
  3. HIZENTRA [Suspect]
     Active Substance: HUMAN IMMUNOGLOBULIN G
     Dosage: 40 GRAM, QW
     Route: 065

REACTIONS (25)
  - Infusion site pruritus [Unknown]
  - Recalled product administered [Unknown]
  - Infusion site erythema [Unknown]
  - Recalled product administered [Unknown]
  - Infusion site swelling [Unknown]
  - Recalled product administered [Unknown]
  - Infusion site vesicles [Unknown]
  - Recalled product administered [Unknown]
  - Blister [Recovering/Resolving]
  - Blister [Recovering/Resolving]
  - Blister [Recovering/Resolving]
  - Recalled product administered [Recovering/Resolving]
  - Recalled product administered [Recovering/Resolving]
  - Erythema [Recovering/Resolving]
  - Erythema [Recovering/Resolving]
  - Erythema [Recovering/Resolving]
  - Recalled product administered [Recovering/Resolving]
  - Recalled product administered [Recovering/Resolving]
  - Rash pruritic [Recovering/Resolving]
  - Rash pruritic [Recovering/Resolving]
  - Rash pruritic [Recovering/Resolving]
  - Recalled product administered [Recovering/Resolving]
  - Recalled product administered [Recovering/Resolving]
  - No adverse event [Recovering/Resolving]
  - Product dose omission issue [Recovering/Resolving]

NARRATIVE: CASE EVENT DATE: 20211229
